FAERS Safety Report 19918504 (Version 1)
Quarter: 2021Q4

REPORT INFORMATION
  Report Type: Spontaneous
  Country: US (occurrence: US)
  Receive Date: 20211005
  Receipt Date: 20211005
  Transmission Date: 20220303
  Serious: No
  Sender: FDA-Public Use
  Company Number: US-PFIZER INC-202101111428

PATIENT
  Age: 68 Year
  Sex: Female

DRUGS (1)
  1. NICOTROL [Suspect]
     Active Substance: NICOTINE
     Indication: Smoking cessation therapy
     Dosage: ONE PUFF, AS NEEDED

REACTIONS (3)
  - Tobacco user [Unknown]
  - Product administration error [Unknown]
  - Product storage error [Unknown]
